FAERS Safety Report 9455995 (Version 3)
Quarter: 2013Q4

REPORT INFORMATION
  Report Type: Spontaneous
  Country: US (occurrence: US)
  Receive Date: 20130813
  Receipt Date: 20131024
  Transmission Date: 20140711
  Serious: Yes (Other)
  Sender: FDA-Public Use
  Company Number: US-PFIZER INC-2013234511

PATIENT
  Age: 76 Year
  Sex: Female

DRUGS (4)
  1. VENLAFAXINE HCL [Suspect]
     Indication: CATAPLEXY
     Dosage: 75 MG/DAY
  2. VENLAFAXINE HCL [Suspect]
     Dosage: INCREASED
  3. OXYBATE SODIUM [Suspect]
     Indication: CATAPLEXY
     Dosage: 9 G, 1X/DAY, NIGHTLY
  4. LISINOPRIL [Concomitant]
     Indication: HYPERTENSION
     Dosage: UNK

REACTIONS (9)
  - Off label use [Unknown]
  - Cataplexy [Recovered/Resolved]
  - Hallucination [Unknown]
  - Hypertension [Recovered/Resolved]
  - Somnambulism [Unknown]
  - Sleep-related eating disorder [Unknown]
  - Fall [Unknown]
  - Gastroenteritis [Unknown]
  - Vomiting [Unknown]
